FAERS Safety Report 11971859 (Version 1)
Quarter: 2016Q1

REPORT INFORMATION
  Report Type: Spontaneous
  Country: US (occurrence: US)
  Receive Date: 20160128
  Receipt Date: 20160128
  Transmission Date: 20160526
  Serious: Yes (Other)
  Sender: FDA-Public Use
  Company Number: US-MEDTRONIC-1047033

PATIENT
  Age: 55 Year
  Sex: Female

DRUGS (5)
  1. PAIN MEDICATIONS (UNSPECIFIED) [Suspect]
     Active Substance: UNSPECIFIED INGREDIENT
     Route: 048
  2. CLONIDINE. [Suspect]
     Active Substance: CLONIDINE
     Route: 037
  3. COMPOUNDED BACLOFEN INTRATHECAL [Suspect]
     Active Substance: BACLOFEN
     Indication: MUSCLE SPASTICITY
     Route: 037
  4. OXYCONTIN [Suspect]
     Active Substance: OXYCODONE HYDROCHLORIDE
     Route: 048
  5. FENTANYL. [Suspect]
     Active Substance: FENTANYL
     Route: 062

REACTIONS (21)
  - Seasonal allergy [None]
  - Pyrexia [None]
  - Spinal osteoarthritis [None]
  - Dysuria [None]
  - Back pain [None]
  - Drug dependence [None]
  - Blood urine present [None]
  - Urinary tract infection [None]
  - Spinal flattening [None]
  - Bursitis [None]
  - Nasal congestion [None]
  - Pain [None]
  - Gait disturbance [None]
  - Performance status decreased [None]
  - Intervertebral disc degeneration [None]
  - Joint range of motion decreased [None]
  - Cystitis [None]
  - Arthralgia [None]
  - Breakthrough pain [None]
  - Neck pain [None]
  - Change of bowel habit [None]

NARRATIVE: CASE EVENT DATE: 201504
